FAERS Safety Report 6011402-4 (Version None)
Quarter: 2008Q4

REPORT INFORMATION
  Report Type: 
  Country: None (occurrence: None)
  Receive Date: 20081218
  Receipt Date: 19990409
  Transmission Date: 20090506
  Serious: Yes (Death, Hospitalization, Disabling)
  Sender: FDA-Public Use
  Company Number: CH-ROCHE-111596

PATIENT
  Sex: Male

DRUGS (1)
  1. TORSEMIDE [Suspect]
     Route: 048
     Dates: start: 19981217, end: 19990102

REACTIONS (5)
  - ABDOMINAL DISCOMFORT [None]
  - CARDIAC FAILURE [None]
  - DEATH [None]
  - GALLBLADDER DISORDER [None]
  - MYOCARDIAL INFARCTION [None]
